FAERS Safety Report 11125589 (Version 1)
Quarter: 2015Q2

REPORT INFORMATION
  Report Type: Spontaneous
  Country: US (occurrence: US)
  Receive Date: 20150520
  Receipt Date: 20150520
  Transmission Date: 20150821
  Serious: No
  Sender: FDA-Public Use
  Company Number: US-PFIZER INC-2015168476

PATIENT
  Age: 58 Year
  Sex: Male
  Weight: 127 kg

DRUGS (1)
  1. CHANTIX [Suspect]
     Active Substance: VARENICLINE TARTRATE
     Dosage: UNK, 2X/DAY

REACTIONS (2)
  - Loss of dreaming [Unknown]
  - Drug ineffective [Unknown]
